FAERS Safety Report 17945017 (Version 2)
Quarter: 2021Q1

REPORT INFORMATION
  Report Type: Spontaneous
  Country: US (occurrence: US)
  Receive Date: 20200625
  Receipt Date: 20210323
  Transmission Date: 20210419
  Serious: No
  Sender: FDA-Public Use
  Company Number: US-SA-2020SA163461

PATIENT
  Age: 72 Year
  Sex: Female

DRUGS (24)
  1. FLUTICASONE PROPIONATE. [Concomitant]
     Active Substance: FLUTICASONE PROPIONATE
  2. XHANCE [Concomitant]
     Active Substance: FLUTICASONE PROPIONATE
  3. VITAMIN C [Concomitant]
     Active Substance: ASCORBIC ACID
  4. TELMISARTAN. [Concomitant]
     Active Substance: TELMISARTAN
  5. ATORVASTATIN CALCIUM. [Concomitant]
     Active Substance: ATORVASTATIN CALCIUM
  6. CALCIUM [Concomitant]
     Active Substance: CALCIUM
  7. ESOMEPRAZOLE. [Concomitant]
     Active Substance: ESOMEPRAZOLE MAGNESIUM
  8. OMEGA?3 NOS [Concomitant]
     Active Substance: OMEGA-3 FATTY ACIDS
  9. MONTELUKAST SODIUM. [Concomitant]
     Active Substance: MONTELUKAST SODIUM
  10. PREDNISONE. [Concomitant]
     Active Substance: PREDNISONE
  11. MULTIVITAMINS [VITAMINS NOS] [Concomitant]
     Active Substance: VITAMINS
  12. OMEGA 3 [DOCOSAHEXAENOIC ACID;EICOSAPENTAENOIC ACID;TOCOPHEROL] [Concomitant]
     Active Substance: DOCONEXENT\ICOSAPENT\TOCOPHEROL
  13. ATORVASTATIN [Concomitant]
     Active Substance: ATORVASTATIN
  14. ALBUTEROL SULFATE HFA [Concomitant]
     Active Substance: ALBUTEROL SULFATE
  15. MONTELUKAST [Concomitant]
     Active Substance: MONTELUKAST SODIUM
  16. DUPIXENT [Suspect]
     Active Substance: DUPILUMAB
     Indication: ASTHMA
     Dosage: 300 MG, QOW
     Route: 058
     Dates: start: 202003
  17. CALCIUM CARBONATE. [Concomitant]
     Active Substance: CALCIUM CARBONATE
  18. ALBUTEROL SULFATE. [Concomitant]
     Active Substance: ALBUTEROL SULFATE
  19. DOXYCYCLINE HYCLATE. [Concomitant]
     Active Substance: DOXYCYCLINE HYCLATE
  20. HYDROMET [HOMATROPINE METHYLBROMIDE;HYDROCODONE BITARTRATE] [Concomitant]
  21. SYNTHROID [Concomitant]
     Active Substance: LEVOTHYROXINE SODIUM
  22. LEVOTHYROXINE. [Concomitant]
     Active Substance: LEVOTHYROXINE
  23. LEVOTHYROXINE SODIUM. [Concomitant]
     Active Substance: LEVOTHYROXINE SODIUM
  24. ESOMEPRAZOLE MAGNESIUM. [Concomitant]
     Active Substance: ESOMEPRAZOLE MAGNESIUM

REACTIONS (7)
  - Cough [Recovering/Resolving]
  - Wheezing [Recovering/Resolving]
  - Dyspnoea [Unknown]
  - Wheezing [Unknown]
  - Therapeutic response decreased [Unknown]
  - Chest discomfort [Unknown]
  - Cough [Not Recovered/Not Resolved]

NARRATIVE: CASE EVENT DATE: 2020
